FAERS Safety Report 22588000 (Version 1)
Quarter: 2023Q2

REPORT INFORMATION
  Report Type: Spontaneous
  Country: CN (occurrence: CN)
  Receive Date: 20230612
  Receipt Date: 20230612
  Transmission Date: 20230721
  Serious: Yes (Other)
  Sender: FDA-Public Use
  Company Number: None

PATIENT
  Age: 40 Year
  Sex: Female
  Weight: 55 kg

DRUGS (6)
  1. CYCLOPHOSPHAMIDE [Suspect]
     Active Substance: CYCLOPHOSPHAMIDE
     Indication: Breast cancer female
     Dosage: 0.90 G, QD, DILUTED WITH 40 ML OF 0.9% NS, SLOW PUSH, AS A PART EC REGIMEN, THIRD CHEMOTHERAPY
     Route: 042
     Dates: start: 20230418, end: 20230418
  2. CYCLOPHOSPHAMIDE [Suspect]
     Active Substance: CYCLOPHOSPHAMIDE
     Indication: Chemotherapy
  3. SODIUM CHLORIDE [Suspect]
     Active Substance: SODIUM CHLORIDE
     Indication: Medication dilution
     Dosage: (STRENGTH:0.9%, DOSAGE FORM: INJECTION), 40 ML, QD, USED TO DILUTE 0.9 G OF CYCLOPHOSPHAMIDE, SLOW P
     Route: 042
     Dates: start: 20230418, end: 20230418
  4. SODIUM CHLORIDE [Suspect]
     Active Substance: SODIUM CHLORIDE
     Dosage: (STRENGTH:0.9%, DOSAGE FORM: INJECTION) 100 ML, QD, USED TO DILUTE 135 MG OF EPIRUBICIN, AS A PART E
     Route: 041
     Dates: start: 20230418, end: 20230418
  5. EPIRUBICIN HYDROCHLORIDE [Suspect]
     Active Substance: EPIRUBICIN HYDROCHLORIDE
     Indication: Breast cancer female
     Dosage: 135 MG, QD, DILUTED WITH 100 ML OF 0.9% NS, AS A PART EC REGIMEN, THIRD CHEMOTHERAPY
     Route: 041
     Dates: start: 20230418, end: 20230418
  6. EPIRUBICIN HYDROCHLORIDE [Suspect]
     Active Substance: EPIRUBICIN HYDROCHLORIDE
     Indication: Chemotherapy

REACTIONS (1)
  - White blood cell count decreased [Recovering/Resolving]

NARRATIVE: CASE EVENT DATE: 20230418
